FAERS Safety Report 23763362 (Version 1)
Quarter: 2024Q2

REPORT INFORMATION
  Report Type: Spontaneous
  Country: KR (occurrence: None)
  Receive Date: 20240419
  Receipt Date: 20240419
  Transmission Date: 20240716
  Serious: Yes (Death, Other)
  Sender: FDA-Public Use
  Company Number: 2024A091822

PATIENT
  Age: 58 Year
  Sex: Female

DRUGS (3)
  1. GEFITINIB [Suspect]
     Active Substance: GEFITINIB
     Indication: Non-small cell lung cancer
     Route: 048
  2. OSIMERTINIB [Suspect]
     Active Substance: OSIMERTINIB
     Indication: Non-small cell lung cancer
     Route: 048
  3. CISPLATIN\PEMETREXED [Suspect]
     Active Substance: CISPLATIN\PEMETREXED
     Indication: Non-small cell lung cancer

REACTIONS (4)
  - Metastases to meninges [Fatal]
  - Malignant neoplasm progression [Unknown]
  - Metastases to central nervous system [Unknown]
  - Abdominal pain [Unknown]
